FAERS Safety Report 7499742-3 (Version None)
Quarter: 2011Q2

REPORT INFORMATION
  Report Type: 
  Country: None (occurrence: None)
  Receive Date: 20110524
  Receipt Date: 20110511
  Transmission Date: 20111010
  Serious: Yes (Hospitalization)
  Sender: FDA-Public Use
  Company Number: KR-ACTELION-A-CH2011-47729

PATIENT
  Sex: Female
  Weight: 54 kg

DRUGS (2)
  1. TRACLEER [Suspect]
     Indication: PULMONARY ARTERIAL HYPERTENSION
     Dosage: 125 MG, BID
     Route: 048
     Dates: start: 20100114, end: 20100223
  2. TRACLEER [Suspect]
     Dosage: 125 MG, OD
     Route: 048
     Dates: start: 20071231, end: 20091220

REACTIONS (2)
  - ADENOMYOSIS [None]
  - INVESTIGATION [None]
